FAERS Safety Report 11306572 (Version 2)
Quarter: 2015Q3

REPORT INFORMATION
  Report Type: Spontaneous
  Country: US (occurrence: US)
  Receive Date: 20150723
  Receipt Date: 20150909
  Transmission Date: 20151125
  Serious: Yes (Life-Threatening, Hospitalization)
  Sender: FDA-Public Use
  Company Number: US-MALLINCKRODT-T201503460

PATIENT
  Age: 23 Year
  Sex: Male

DRUGS (1)
  1. GABLOFEN [Suspect]
     Active Substance: BACLOFEN
     Indication: MUSCLE SPASTICITY
     Dosage: UNK
     Route: 037

REACTIONS (2)
  - Erythema [Recovered/Resolved]
  - Implant site infection [Recovered/Resolved]

NARRATIVE: CASE EVENT DATE: 20140113
